FAERS Safety Report 8774047 (Version 2)
Quarter: 2012Q4

REPORT INFORMATION
  Report Type: 
  Country: GB (occurrence: GB)
  Receive Date: 20120908
  Receipt Date: 20120924
  Transmission Date: 20130627
  Serious: Yes (Life-Threatening)
  Sender: FDA-Public Use
  Company Number: GB-ABBOTT-12P-167-0977381-00

PATIENT
  Age: 60 Year
  Sex: Male

DRUGS (5)
  1. VALPROATE SODIUM [Suspect]
     Dates: start: 20120615
  2. CLOBAZAM [Suspect]
     Indication: CONVULSION
     Dates: start: 20120822
  3. EPILIM CHRONO [Concomitant]
     Indication: PRODUCT USED FOR UNKNOWN INDICATION
  4. LOPERAMIDE [Concomitant]
     Indication: PRODUCT USED FOR UNKNOWN INDICATION
  5. MIDAZOLAM [Concomitant]
     Indication: PRODUCT USED FOR UNKNOWN INDICATION

REACTIONS (1)
  - Ventricular tachycardia [Recovered/Resolved]
